FAERS Safety Report 7864526-0 (Version None)
Quarter: 2011Q4

REPORT INFORMATION
  Report Type: 
  Country: None (occurrence: None)
  Receive Date: 20111028
  Receipt Date: 20111025
  Transmission Date: 20120403
  Serious: No
  Sender: FDA-Public Use
  Company Number: US-PFIZER INC-2011260053

PATIENT
  Sex: Female
  Weight: 71.202 kg

DRUGS (2)
  1. PRISTIQ [Suspect]
     Indication: BIPOLAR I DISORDER
     Dosage: 50 MG, 1X/DAY
     Route: 048
     Dates: start: 20111021
  2. VALPROATE SODIUM [Concomitant]
     Indication: BIPOLAR DISORDER
     Dosage: UNK

REACTIONS (1)
  - SKIN DISORDER [None]
